FAERS Safety Report 9286290 (Version 1)
Quarter: 2013Q2

REPORT INFORMATION
  Report Type: Spontaneous
  Country: US (occurrence: None)
  Receive Date: 20130503
  Receipt Date: 20130503
  Transmission Date: 20140414
  Serious: Yes (Hospitalization)
  Sender: FDA-Public Use
  Company Number: SYM-2013-03153

PATIENT
  Age: 52 Year
  Sex: Male

DRUGS (4)
  1. BUPROPION HYDROCHLORIDE [Suspect]
     Indication: SMOKING CESSATION THERAPY
     Route: 048
     Dates: start: 20120703, end: 20120924
  2. VARENICLINE [Suspect]
     Indication: SMOKING CESSATION THERAPY
     Dates: start: 20120703, end: 20120924
  3. NICOTINE [Suspect]
     Indication: SMOKING CESSATION THERAPY
     Dates: start: 20120703, end: 20120924
  4. IBUPROFEN (IBUPROFEN) (IBUPROFEN) [Concomitant]

REACTIONS (5)
  - Coronary artery occlusion [None]
  - Angina pectoris [None]
  - Coronary artery disease [None]
  - High density lipoprotein decreased [None]
  - Coronary artery stenosis [None]
